FAERS Safety Report 6053863-0 (Version None)
Quarter: 2009Q1

REPORT INFORMATION
  Report Type: 
  Country: None (occurrence: None)
  Receive Date: 20090127
  Receipt Date: 20090114
  Transmission Date: 20090719
  Serious: Yes (Hospitalization)
  Sender: FDA-Public Use
  Company Number: DE-GENENTECH-243576

PATIENT
  Sex: Female
  Weight: 71 kg

DRUGS (4)
  1. TRASTUZUMAB [Suspect]
     Indication: GASTRIC CANCER
     Dosage: UNK, UNK
     Route: 042
     Dates: start: 20070124
  2. TRASTUZUMAB [Suspect]
     Dosage: 420 MG, Q3W
  3. CISPLATIN [Suspect]
     Indication: GASTRIC CANCER
     Dosage: 107 MG, Q3W
     Route: 042
  4. CAPECITABINE [Suspect]
     Indication: GASTRIC CANCER
     Dosage: 2600 MG, D1-14/Q3W
     Route: 048
     Dates: start: 20070124

REACTIONS (1)
  - ORTHOSTATIC HYPOTENSION [None]
